FAERS Safety Report 8458414-9 (Version None)
Quarter: 2012Q2

REPORT INFORMATION
  Report Type: 
  Country: None (occurrence: None)
  Receive Date: 20120622
  Receipt Date: 20120614
  Transmission Date: 20120825
  Serious: Yes (Hospitalization)
  Sender: FDA-Public Use
  Company Number: JP-ASTELLAS-2012JP003570

PATIENT
  Sex: Female
  Weight: 48 kg

DRUGS (7)
  1. IMURAN [Concomitant]
     Indication: COLITIS ULCERATIVE
     Dosage: 50 MG, UID/QD
     Route: 048
     Dates: start: 20120321
  2. BIOFERMIN                          /00275501/ [Concomitant]
     Indication: COLITIS ULCERATIVE
     Dosage: 1 DF, TID
     Route: 048
     Dates: start: 20100407
  3. ALENDRONATE SODIUM [Concomitant]
     Indication: OSTEOPOROSIS
     Dosage: 35 MG, WEEKLY
     Route: 048
     Dates: start: 20111213
  4. PENTASA [Concomitant]
     Indication: COLITIS ULCERATIVE
     Dosage: 2 G, BID
     Route: 048
     Dates: start: 20120410
  5. PREDNISOLONE [Concomitant]
     Indication: COLITIS ULCERATIVE
     Dosage: 15 MG, UID/QD
     Route: 048
     Dates: start: 20111101
  6. PROGRAF [Suspect]
     Indication: COLITIS ULCERATIVE
     Dosage: 2 MG, BID
     Route: 048
     Dates: start: 20120414, end: 20120418
  7. OMEPRAZOLE [Concomitant]
     Indication: GASTROOESOPHAGEAL REFLUX DISEASE
     Dosage: 20 MG, UID/QD
     Route: 048
     Dates: start: 20111213

REACTIONS (1)
  - DRUG-INDUCED LIVER INJURY [None]
